FAERS Safety Report 9824328 (Version 2)
Quarter: 2014Q1

REPORT INFORMATION
  Report Type: Spontaneous
  Country: US (occurrence: US)
  Receive Date: 20140116
  Receipt Date: 20140116
  Transmission Date: 20141002
  Serious: No
  Sender: FDA-Public Use
  Company Number: US-GILEAD-2011-0039510

PATIENT
  Sex: Female

DRUGS (17)
  1. LETAIRIS [Suspect]
     Indication: PULMONARY HYPERTENSION
     Route: 048
     Dates: start: 20110415
  2. LETAIRIS [Suspect]
     Indication: SYSTEMIC LUPUS ERYTHEMATOSUS
  3. REMODULIN [Concomitant]
  4. DIGOXIN [Concomitant]
  5. PROPRANOLOL [Concomitant]
  6. SPIRONOLACTONE [Concomitant]
  7. FUROSEMIDE [Concomitant]
  8. LEVOTHYROXINE [Concomitant]
  9. PLAQUENIL                          /00072602/ [Concomitant]
  10. AYGESTIN [Concomitant]
  11. PREDNISONE [Concomitant]
  12. OXYCODONE [Concomitant]
  13. CITALOPRAM [Concomitant]
  14. CLONAZEPAM [Concomitant]
  15. FERROUS SULFATE [Concomitant]
  16. CALCIUM [Concomitant]
  17. POTASSIUM CHLORIDE [Concomitant]

REACTIONS (1)
  - Hyperhidrosis [Not Recovered/Not Resolved]
